FAERS Safety Report 6649405-9 (Version None)
Quarter: 2010Q1

REPORT INFORMATION
  Report Type: 
  Country: None (occurrence: None)
  Receive Date: 20100322
  Receipt Date: 20100308
  Transmission Date: 20100710
  Serious: Yes (Other)
  Sender: FDA-Public Use
  Company Number: US-1180950

PATIENT
  Sex: Female
  Weight: 63.5036 kg

DRUGS (7)
  1. AZOPT [Suspect]
     Indication: GLAUCOMA
     Dosage: (ONE GTT OU BID OPHTHALMIC)
     Route: 047
     Dates: start: 20091010, end: 20091029
  2. AZOPT [Suspect]
     Indication: MACULAR DEGENERATION
     Dosage: (ONE GTT OU BID OPHTHALMIC)
     Route: 047
     Dates: start: 20091010, end: 20091029
  3. NIFEDIPINE [Concomitant]
  4. NAPROXEN [Concomitant]
  5. PRAVASTATIN SODIUM [Concomitant]
  6. COMBIGAN [Concomitant]
  7. LUMIGAN [Concomitant]

REACTIONS (6)
  - ATAXIA [None]
  - EYE DISCHARGE [None]
  - EYELID OEDEMA [None]
  - FOREIGN BODY SENSATION IN EYES [None]
  - VERTIGO [None]
  - VISUAL IMPAIRMENT [None]
